FAERS Safety Report 25479499 (Version 1)
Quarter: 2025Q2

REPORT INFORMATION
  Report Type: Spontaneous
  Country: US (occurrence: US)
  Receive Date: 20250625
  Receipt Date: 20250625
  Transmission Date: 20250717
  Serious: No
  Sender: SANOFI AVENTIS
  Company Number: US-SA-2025SA176870

PATIENT
  Age: 71 Year
  Sex: Female
  Weight: 78.458 kg

DRUGS (13)
  1. DUPIXENT [Suspect]
     Active Substance: DUPILUMAB
     Indication: Dermatitis atopic
     Dosage: 300 MG, QOW
     Route: 058
  2. LINZESS [Suspect]
     Active Substance: LINACLOTIDE
     Route: 065
  3. TAFLUPROST [Concomitant]
     Active Substance: TAFLUPROST
  4. METOPROLOL SUCCINATE [Concomitant]
     Active Substance: METOPROLOL SUCCINATE
  5. CRESTOR [Concomitant]
     Active Substance: ROSUVASTATIN CALCIUM
  6. ZOLOFT [Concomitant]
     Active Substance: SERTRALINE HYDROCHLORIDE
  7. PROTONIX [Concomitant]
     Active Substance: PANTOPRAZOLE SODIUM
  8. FISH OIL [Concomitant]
     Active Substance: FISH OIL
  9. VITAMIN D2 [Concomitant]
     Active Substance: ERGOCALCIFEROL
  10. AZELASTINE HYDROCHLORIDE [Concomitant]
     Active Substance: AZELASTINE HYDROCHLORIDE
  11. XARELTO [Concomitant]
     Active Substance: RIVAROXABAN
  12. XIIDRA [Concomitant]
     Active Substance: LIFITEGRAST
  13. BRIMONIDINE TARTRATE [Concomitant]
     Active Substance: BRIMONIDINE TARTRATE

REACTIONS (7)
  - Pain in extremity [Unknown]
  - Headache [Unknown]
  - Diarrhoea [Unknown]
  - Dry mouth [Unknown]
  - Fungal infection [Unknown]
  - Depression [Unknown]
  - Sleep disorder [Unknown]

NARRATIVE: CASE EVENT DATE: 20250501
